FAERS Safety Report 20481285 (Version 1)
Quarter: 2022Q1

REPORT INFORMATION
  Report Type: Spontaneous
  Country: US (occurrence: None)
  Receive Date: 20220216
  Receipt Date: 20220216
  Transmission Date: 20220424
  Serious: Yes (Other)
  Sender: FDA-Public Use
  Company Number: None

PATIENT
  Age: 49 Year
  Sex: Female
  Weight: 47.25 kg

DRUGS (4)
  1. LEVOFLOXACIN [Suspect]
     Active Substance: LEVOFLOXACIN
     Indication: Bacterial infection
     Dosage: OTHER QUANTITY : 1 TABLET(S);?FREQUENCY : DAILY;?
     Route: 048
     Dates: start: 20220201, end: 20220201
  2. omega 3 supplement [Concomitant]
  3. curcumin supplement [Concomitant]
  4. multivitamin supplement [Concomitant]

REACTIONS (8)
  - Arthralgia [None]
  - Pain in extremity [None]
  - Burning sensation [None]
  - Paraesthesia [None]
  - Feeling hot [None]
  - Feeling cold [None]
  - Sleep disorder [None]
  - Heart rate irregular [None]

NARRATIVE: CASE EVENT DATE: 20220201
